FAERS Safety Report 8965713 (Version 1)
Quarter: 2012Q4

REPORT INFORMATION
  Report Type: Spontaneous
  Country: US (occurrence: None)
  Receive Date: 20121212
  Receipt Date: 20121212
  Transmission Date: 20130627
  Serious: Yes (Other)
  Sender: FDA-Public Use
  Company Number: None

PATIENT
  Age: 21 Year
  Sex: Female
  Weight: 68.04 kg

DRUGS (1)
  1. VIVITROL [Suspect]
     Indication: OPIOID TYPE DEPENDENCE
     Dosage: 380 mg Q 4 weeks IM
     Dates: start: 20120912, end: 20121107

REACTIONS (2)
  - Eye pain [None]
  - Headache [None]
